FAERS Safety Report 7932302-6 (Version None)
Quarter: 2011Q4

REPORT INFORMATION
  Report Type: 
  Country: None (occurrence: None)
  Receive Date: 20111121
  Receipt Date: 20111118
  Transmission Date: 20120403
  Serious: Yes (Life-Threatening, Hospitalization)
  Sender: FDA-Public Use
  Company Number: IE-B.I. PHARMACEUTICALS,INC./RIDGEFIELD-2011-UK-00837UK

PATIENT
  Age: 48 Year
  Sex: Male
  Weight: 62 kg

DRUGS (4)
  1. PRADAXA [Suspect]
     Indication: PULMONARY EMBOLISM
  2. PRADAXA [Suspect]
  3. PRADAXA [Suspect]
     Indication: THROMBOSIS PROPHYLAXIS
     Dosage: 300 MG
     Route: 048
     Dates: start: 20110501
  4. MIRTAZAPINE [Concomitant]
     Indication: DEPRESSION
     Dosage: 30 MG
     Dates: start: 20090901

REACTIONS (2)
  - ACUTE MYOCARDIAL INFARCTION [None]
  - MYOCARDIAL INFARCTION [None]
